FAERS Safety Report 7547642-2 (Version None)
Quarter: 2011Q2

REPORT INFORMATION
  Report Type: 
  Country: None (occurrence: None)
  Receive Date: 20110614
  Receipt Date: 20110608
  Transmission Date: 20111010
  Serious: Yes (Other)
  Sender: FDA-Public Use
  Company Number: US-MERCK-1106USA00985

PATIENT
  Age: 52 Year
  Sex: Female

DRUGS (9)
  1. REBIF [Suspect]
     Route: 058
     Dates: start: 20100101, end: 20110226
  2. METHOCARBAMOL [Concomitant]
     Route: 065
  3. PREVACID [Concomitant]
     Route: 065
  4. REBIF [Suspect]
     Indication: MULTIPLE SCLEROSIS
     Route: 058
     Dates: start: 20090901, end: 20100101
  5. ENABLEX [Concomitant]
     Route: 065
  6. LASIX [Concomitant]
     Route: 065
  7. FOSAMAX [Suspect]
     Route: 065
     Dates: end: 20110305
  8. LOSARTAN POTASSIUM [Concomitant]
     Route: 048
  9. TIZANIDINE HYDROCHLORIDE [Concomitant]
     Route: 065

REACTIONS (5)
  - ANAEMIA [None]
  - PROTEINURIA [None]
  - RENAL FAILURE [None]
  - NEPHROPATHY [None]
  - GLOMERULONEPHRITIS [None]
